FAERS Safety Report 7237853-8 (Version None)
Quarter: 2011Q1

REPORT INFORMATION
  Report Type: 
  Country: None (occurrence: None)
  Receive Date: 20110121
  Receipt Date: 20110113
  Transmission Date: 20110831
  Serious: No
  Sender: FDA-Public Use
  Company Number: US-B.I. PHARMACEUTICALS,INC./RIDGEFIELD-2011-BP-01233BP

PATIENT
  Sex: Female

DRUGS (9)
  1. PRADAXA [Suspect]
     Indication: ATRIAL FIBRILLATION
     Dosage: 300 MG
     Route: 048
     Dates: start: 20110110
  2. PROZAC [Concomitant]
     Indication: DEPRESSION
  3. ZIAC [Concomitant]
     Indication: HYPERTENSION
  4. PRAVASTATIN [Concomitant]
     Indication: BLOOD CHOLESTEROL INCREASED
  5. MICARDIS [Concomitant]
     Indication: HYPERTENSION
     Dates: start: 20070101
  6. GABAPENTIN [Concomitant]
     Indication: RESTLESS LEGS SYNDROME
  7. RANITIDINE [Concomitant]
     Indication: GASTROOESOPHAGEAL REFLUX DISEASE
  8. ARTHROTEC [Concomitant]
     Indication: ARTHRITIS
  9. QVAR 40 [Concomitant]
     Indication: ASTHMA

REACTIONS (1)
  - NERVOUSNESS [None]
